FAERS Safety Report 25163119 (Version 1)
Quarter: 2025Q2

REPORT INFORMATION
  Report Type: Spontaneous
  Country: IN (occurrence: IN)
  Receive Date: 20250404
  Receipt Date: 20250404
  Transmission Date: 20250717
  Serious: Yes (Death, Hospitalization)
  Sender: MEDEXUS PHARMA
  Company Number: IN-MEDEXUS PHARMA, INC.-2025MED00078

PATIENT
  Age: 61 Year
  Sex: Male

DRUGS (1)
  1. METHOTREXATE [Suspect]
     Active Substance: METHOTREXATE
     Indication: Rheumatoid arthritis
     Dosage: 15 MG, 1X/DAY

REACTIONS (9)
  - Hypoalbuminaemia [Unknown]
  - Hyperbilirubinaemia [Unknown]
  - Pancytopenia [Unknown]
  - Septic shock [Fatal]
  - Hypertransaminasaemia [Unknown]
  - Mucosal inflammation [Unknown]
  - Skin ulcer [Unknown]
  - Vomiting [Unknown]
  - Toxicity to various agents [Unknown]
